FAERS Safety Report 9185669 (Version 1)
Quarter: 2012Q4

REPORT INFORMATION
  Report Type: 
  Country: GB (occurrence: GB)
  Receive Date: 20121031
  Receipt Date: 20121031
  Transmission Date: 20130627
  Serious: Yes (Disabling, Other)
  Sender: FDA-Public Use
  Company Number: GB-UCBSA-069788

PATIENT
  Age: 54 Year
  Sex: Female
  Weight: 88.9 kg

DRUGS (4)
  1. CIMZIA [Suspect]
     Indication: RHEUMATOID ARTHRITIS
     Dates: start: 20120917, end: 20121002
  2. LANSOPRAZOLE [Concomitant]
  3. NAPROXEN [Concomitant]
  4. PARACETAMOL [Concomitant]

REACTIONS (5)
  - Sjogren^s syndrome [Not Recovered/Not Resolved]
  - Rash [Not Recovered/Not Resolved]
  - Body temperature increased [Not Recovered/Not Resolved]
  - Headache [Not Recovered/Not Resolved]
  - Tinnitus [Recovering/Resolving]
